FAERS Safety Report 14940618 (Version 1)
Quarter: 2018Q2

REPORT INFORMATION
  Report Type: Spontaneous
  Country: US (occurrence: US)
  Receive Date: 20180525
  Receipt Date: 20180525
  Transmission Date: 20180711
  Serious: No
  Sender: FDA-Public Use
  Company Number: US-PFIZER INC-2018215055

PATIENT
  Age: 68 Year
  Sex: Male

DRUGS (1)
  1. MARCAINE [Suspect]
     Active Substance: BUPIVACAINE HYDROCHLORIDE
     Indication: HIP ARTHROPLASTY
     Dosage: 7.5MG PER 2 ML, 2 ML INJECTION ONCE
     Dates: start: 20180522, end: 20180522

REACTIONS (1)
  - Drug ineffective [Unknown]

NARRATIVE: CASE EVENT DATE: 20180522
